FAERS Safety Report 19458195 (Version 7)
Quarter: 2025Q3

REPORT INFORMATION
  Report Type: Spontaneous
  Country: EU (occurrence: EU)
  Receive Date: 20210624
  Receipt Date: 20250822
  Transmission Date: 20251021
  Serious: Yes (Hospitalization, Other)
  Sender: OTSUKA
  Company Number: EU-OTSUKA-2021_019903

PATIENT
  Age: 32 Year
  Sex: Female

DRUGS (3)
  1. ABILIFY MAINTENA [Suspect]
     Active Substance: ARIPIPRAZOLE
     Indication: Product used for unknown indication
     Route: 030
  2. ABILIFY [Suspect]
     Active Substance: ARIPIPRAZOLE
     Indication: Product used for unknown indication
     Route: 065
  3. ABILIFY [Suspect]
     Active Substance: ARIPIPRAZOLE
     Dosage: 20 MG, QD (ONCE A DAY FOR TWO YEARS)
     Route: 048

REACTIONS (14)
  - Asphyxia [Not Recovered/Not Resolved]
  - Feeling abnormal [Recovered/Resolved]
  - Adverse event [Recovered/Resolved]
  - Viral diarrhoea [Not Recovered/Not Resolved]
  - Malaise [Unknown]
  - Vertigo [Recovered/Resolved]
  - Abdominal pain [Not Recovered/Not Resolved]
  - Dyspnoea [Not Recovered/Not Resolved]
  - Chest pain [Recovered/Resolved]
  - Injection site pain [Recovered/Resolved]
  - Dizziness [Recovered/Resolved]
  - Somnolence [Recovered/Resolved]
  - Dizziness [Not Recovered/Not Resolved]
  - Treatment noncompliance [Unknown]
